FAERS Safety Report 20913281 (Version 1)
Quarter: 2022Q2

REPORT INFORMATION
  Report Type: Report from Study
  Country: US (occurrence: US)
  Receive Date: 20220603
  Receipt Date: 20220603
  Transmission Date: 20220721
  Serious: Yes (Hospitalization, Other)
  Sender: FDA-Public Use
  Company Number: US-BAYER-2022A078620

PATIENT
  Age: 47 Year
  Sex: Female
  Weight: 58.957 kg

DRUGS (5)
  1. ADEMPAS [Suspect]
     Active Substance: RIOCIGUAT
     Indication: Pulmonary arterial hypertension
     Dosage: UNK
     Dates: start: 20170119
  2. ADEMPAS [Suspect]
     Active Substance: RIOCIGUAT
     Indication: Pulmonary arterial hypertension
     Dosage: 2.5 MG, TID
     Route: 048
  3. AMBRISENTAN [Concomitant]
     Active Substance: AMBRISENTAN
  4. VELETRI [Concomitant]
     Active Substance: EPOPROSTENOL
  5. ELIQUIS [Concomitant]
     Active Substance: APIXABAN

REACTIONS (2)
  - COVID-19 [None]
  - Hospitalisation [None]

NARRATIVE: CASE EVENT DATE: 20220530
